FAERS Safety Report 15272669 (Version 1)
Quarter: 2018Q3

REPORT INFORMATION
  Report Type: Spontaneous
  Country: US (occurrence: US)
  Receive Date: 20180813
  Receipt Date: 20180813
  Transmission Date: 20181010
  Serious: No
  Sender: FDA-Public Use
  Company Number: US-ASTRAZENECA-2018SF01935

PATIENT
  Sex: Female

DRUGS (1)
  1. LYNPARZA [Suspect]
     Active Substance: OLAPARIB
     Indication: BREAST CANCER FEMALE
     Dosage: 150 MG TABLET FOR 2 CONSECUTIVE DAYS
     Route: 048

REACTIONS (5)
  - Erythema [Unknown]
  - Flushing [Unknown]
  - Drug dose omission [Unknown]
  - Product use issue [Unknown]
  - Drug hypersensitivity [Unknown]
